FAERS Safety Report 4508971-X (Version None)
Quarter: 2004Q4

REPORT INFORMATION
  Report Type: 
  Country: None (occurrence: None)
  Receive Date: 20041122
  Receipt Date: 20041122
  Transmission Date: 20050328
  Serious: No
  Sender: FDA-Public Use
  Company Number: None

PATIENT
  Sex: Male
  Weight: 97 kg

DRUGS (8)
  1. ZOCOR [Suspect]
     Indication: HYPERLIPIDAEMIA
     Dosage: 80 MG HS ORAL
     Route: 048
     Dates: start: 20040507, end: 20041104
  2. LISINOPRIL [Concomitant]
  3. ADALAT [Concomitant]
  4. ATENOLOL [Concomitant]
  5. NITROGLYCERIN [Concomitant]
  6. NTG SL [Concomitant]
  7. OMEGA-3-N-3 POLYUNSAT FATTY ACID [Concomitant]
  8. RANITIDINE [Concomitant]

REACTIONS (1)
  - ARTHRALGIA [None]
